FAERS Safety Report 24852394 (Version 1)
Quarter: 2025Q1

REPORT INFORMATION
  Report Type: Spontaneous
  Country: US (occurrence: US)
  Receive Date: 20250116
  Receipt Date: 20250116
  Transmission Date: 20250408
  Serious: No
  Sender: LUNDBECK
  Company Number: US-LUNDBECK-DKLU4008254

PATIENT

DRUGS (2)
  1. NORTHERA [Suspect]
     Active Substance: DROXIDOPA
     Indication: Orthostatic hypotension
  2. NORTHERA [Suspect]
     Active Substance: DROXIDOPA
     Indication: Autonomic failure syndrome
     Dosage: 600 MILLIGRAM
     Route: 048
     Dates: start: 2015

REACTIONS (2)
  - Dysphagia [Not Recovered/Not Resolved]
  - Product dose omission issue [Unknown]
